FAERS Safety Report 16059434 (Version 3)
Quarter: 2019Q3

REPORT INFORMATION
  Report Type: Report from Study
  Country: US (occurrence: US)
  Receive Date: 20190311
  Receipt Date: 20190723
  Transmission Date: 20191004
  Serious: Yes (Hospitalization, Other)
  Sender: FDA-Public Use
  Company Number: US-ACTELION-A-US2018-177959

PATIENT
  Age: 74 Year
  Sex: Female
  Weight: 75.74 kg

DRUGS (16)
  1. UPTRAVI [Suspect]
     Active Substance: SELEXIPAG
     Indication: PULMONARY ARTERIAL HYPERTENSION
     Dosage: 200 MCG, BID
     Route: 048
     Dates: start: 20180820
  2. OPSUMIT [Suspect]
     Active Substance: MACITENTAN
     Indication: PULMONARY ARTERIAL HYPERTENSION
     Dosage: 10 MG, QD
     Route: 048
     Dates: start: 20150323
  3. FUROSEMIDE. [Concomitant]
     Active Substance: FUROSEMIDE
     Dosage: UNK
     Dates: start: 2015
  4. ADEMPAS [Concomitant]
     Active Substance: RIOCIGUAT
  5. CLARITIN [Concomitant]
     Active Substance: LORATADINE
     Dosage: UNK
     Dates: start: 2015
  6. ALPRAZOLAM. [Concomitant]
     Active Substance: ALPRAZOLAM
     Dosage: UNK
     Dates: start: 201510
  7. ASPIRIN. [Concomitant]
     Active Substance: ASPIRIN
     Dosage: UNK
     Dates: start: 2015
  8. POTASSIUM [Concomitant]
     Active Substance: POTASSIUM
     Dosage: UNK
     Dates: start: 2015
  9. METOLAZONE. [Concomitant]
     Active Substance: METOLAZONE
     Dosage: UNK
     Dates: start: 2015
  10. UPTRAVI [Suspect]
     Active Substance: SELEXIPAG
     Dosage: UNK
     Route: 048
     Dates: start: 20180820
  11. PRADAXA [Concomitant]
     Active Substance: DABIGATRAN ETEXILATE MESYLATE
  12. PREVACID [Concomitant]
     Active Substance: LANSOPRAZOLE
  13. METOPROLOL. [Concomitant]
     Active Substance: METOPROLOL
     Dosage: UNK
     Dates: start: 2015
  14. TIKOSYN [Concomitant]
     Active Substance: DOFETILIDE
  15. UPTRAVI [Suspect]
     Active Substance: SELEXIPAG
     Dosage: 400 MCG, BID
     Route: 048
  16. MELOXICAM. [Concomitant]
     Active Substance: MELOXICAM
     Dosage: UNK
     Dates: start: 2016

REACTIONS (29)
  - Fluid overload [Recovered/Resolved]
  - Oxygen saturation decreased [Unknown]
  - Renal failure [Unknown]
  - Dizziness [Unknown]
  - Hypotension [Unknown]
  - Bronchitis [Unknown]
  - Dyspnoea [Unknown]
  - Sinus pain [Unknown]
  - Asthenia [Unknown]
  - Sinusitis [Unknown]
  - Urinary tract infection [Unknown]
  - Fall [Unknown]
  - Pain [Unknown]
  - Anxiety [Unknown]
  - Palpitations [Unknown]
  - Rebound nasal congestion [Unknown]
  - Fungal infection [Unknown]
  - Nausea [Unknown]
  - Contusion [Unknown]
  - Atrial fibrillation [Unknown]
  - Intentional dose omission [Unknown]
  - Hypoaesthesia [Recovering/Resolving]
  - Neck pain [Unknown]
  - Back pain [Unknown]
  - Sinus congestion [Not Recovered/Not Resolved]
  - Waist circumference increased [Unknown]
  - Headache [Unknown]
  - Vomiting [Unknown]
  - Micturition urgency [Unknown]

NARRATIVE: CASE EVENT DATE: 20180820
